FAERS Safety Report 23093336 (Version 1)
Quarter: 2023Q4

REPORT INFORMATION
  Report Type: Spontaneous
  Country: US (occurrence: US)
  Receive Date: 20231022
  Receipt Date: 20231022
  Transmission Date: 20240110
  Serious: No
  Sender: FDA-Public Use
  Company Number: US-Teikoku Pharma USA-TPU2023-00459

PATIENT
  Sex: Female

DRUGS (3)
  1. LIDOCAINE PATCH [Suspect]
     Active Substance: LIDOCAINE
     Indication: Carpal tunnel syndrome
     Route: 061
     Dates: start: 2009, end: 2013
  2. LIDOCAINE PATCH [Suspect]
     Active Substance: LIDOCAINE
     Indication: Arthritis
     Dates: start: 2013
  3. LIDOCAINE PATCH [Suspect]
     Active Substance: LIDOCAINE
     Indication: Back disorder

REACTIONS (3)
  - Application site rash [Unknown]
  - Arthritis [Unknown]
  - Back disorder [Unknown]

NARRATIVE: CASE EVENT DATE: 20130101
